FAERS Safety Report 4767357-3 (Version None)
Quarter: 2005Q3

REPORT INFORMATION
  Report Type: 
  Country: None (occurrence: None)
  Receive Date: 20050913
  Receipt Date: 20050902
  Transmission Date: 20060218
  Serious: Yes (Death)
  Sender: FDA-Public Use
  Company Number: FR-ROCHE-416470

PATIENT
  Age: 84 Year
  Sex: Male

DRUGS (1)
  1. XELODA [Suspect]
     Route: 048
     Dates: start: 20050315, end: 20050531

REACTIONS (12)
  - ANOREXIA [None]
  - CARDIAC FAILURE [None]
  - DRUG TOXICITY [None]
  - FALL [None]
  - FATIGUE [None]
  - GENERAL PHYSICAL HEALTH DETERIORATION [None]
  - HEPATIC FAILURE [None]
  - HEPATIC FUNCTION ABNORMAL [None]
  - METASTASES TO LIVER [None]
  - MUSCULAR WEAKNESS [None]
  - STOMATITIS [None]
  - WHITE BLOOD CELL COUNT INCREASED [None]
